FAERS Safety Report 6231913-6 (Version None)
Quarter: 2009Q2

REPORT INFORMATION
  Report Type: 
  Country: None (occurrence: None)
  Receive Date: 20090616
  Receipt Date: 20090608
  Transmission Date: 20091009
  Serious: Yes (Other)
  Sender: FDA-Public Use
  Company Number: JP-SANOFI-SYNTHELABO-A01200906015

PATIENT
  Sex: Male

DRUGS (1)
  1. BONZOL [Suspect]
     Indication: ANGIOEDEMA
     Dosage: 300 MG
     Route: 048
     Dates: start: 20081218, end: 20090528

REACTIONS (1)
  - BLOOD CREATINE PHOSPHOKINASE INCREASED [None]
